FAERS Safety Report 17355186 (Version 1)
Quarter: 2020Q1

REPORT INFORMATION
  Report Type: Spontaneous
  Country: US (occurrence: US)
  Receive Date: 20200131
  Receipt Date: 20200131
  Transmission Date: 20200409
  Serious: No
  Sender: FDA-Public Use
  Company Number: US-TEVA-2020-US-1172805

PATIENT
  Sex: Male

DRUGS (12)
  1. REMERON [Concomitant]
     Active Substance: MIRTAZAPINE
  2. ARTANE [Concomitant]
     Active Substance: TRIHEXYPHENIDYL HYDROCHLORIDE
     Dosage: 15 MILLIGRAM DAILY;
  3. AUSTEDO [Suspect]
     Active Substance: DEUTETRABENAZINE
     Route: 065
  4. AMPHETAMINE ASPARTATE [Concomitant]
     Active Substance: AMPHETAMINE ASPARTATE
  5. DEXTROAMPHETAMINE SULFATE AND AMPHETAMINE SULFATE TABLETS CLL [Concomitant]
  6. FLEXERIL [Concomitant]
     Active Substance: CYCLOBENZAPRINE HYDROCHLORIDE
  7. DEXTROAMPHETAMINE SACCHARATE [Concomitant]
     Active Substance: DEXTROAMPHETAMINE SACCHARATE
  8. COGENTIN [Concomitant]
     Active Substance: BENZTROPINE MESYLATE
  9. VALIUM [Concomitant]
     Active Substance: DIAZEPAM
     Dosage: 40 MILLIGRAM DAILY;
  10. FOCALIN [Concomitant]
     Active Substance: DEXMETHYLPHENIDATE HYDROCHLORIDE
  11. IRON [Concomitant]
     Active Substance: IRON
     Indication: ANAEMIA
  12. ORAJEL [Concomitant]
     Active Substance: ALLANTOIN\BENZOCAINE\CAMPHOR (NATURAL)\DIMETHICONE\MENTHOL
     Indication: ORAL PAIN

REACTIONS (1)
  - Drug ineffective [Unknown]
